FAERS Safety Report 5528938-2 (Version None)
Quarter: 2007Q4

REPORT INFORMATION
  Report Type: 
  Country: None (occurrence: None)
  Receive Date: 20071129
  Receipt Date: 20071122
  Transmission Date: 20080405
  Serious: Yes (Other)
  Sender: FDA-Public Use
  Company Number: FR-AVENTIS-200713690FR

PATIENT
  Age: 64 Year
  Sex: Female

DRUGS (10)
  1. FLAGYL [Suspect]
     Indication: SINUSITIS
     Route: 048
     Dates: start: 20071106, end: 20071110
  2. FLAGYL [Suspect]
     Route: 048
     Dates: start: 20071106, end: 20071110
  3. RODOGYL [Suspect]
     Route: 048
     Dates: start: 20071026, end: 20071106
  4. KETEK [Suspect]
     Indication: SINUSITIS
     Route: 048
     Dates: start: 20071117
  5. ORELOX [Concomitant]
     Indication: SINUSITIS
     Route: 048
     Dates: start: 20071106
  6. SOLU-MEDROL [Concomitant]
     Indication: SINUSITIS
     Route: 048
     Dates: start: 20071106, end: 20070101
  7. SOLU-MEDROL [Concomitant]
     Route: 048
     Dates: start: 20071117
  8. HYZAAR [Concomitant]
  9. DETENSIEL                          /00802601/ [Concomitant]
  10. INHALATION NOS [Concomitant]

REACTIONS (3)
  - ATAXIA [None]
  - HALLUCINATION [None]
  - VERTIGO [None]
